FAERS Safety Report 9564867 (Version 2)
Quarter: 2013Q4

REPORT INFORMATION
  Report Type: Spontaneous
  Country: IT (occurrence: IT)
  Receive Date: 20130930
  Receipt Date: 20131009
  Transmission Date: 20140711
  Serious: Yes (Hospitalization, Other)
  Sender: FDA-Public Use
  Company Number: IT-UCBSA-099068

PATIENT
  Age: 54 Year
  Sex: Male

DRUGS (5)
  1. KEPPRA [Suspect]
     Dosage: STRENGTH: 500 MG; 60 FILM COATED TABLETS, 20 DF
     Route: 048
     Dates: start: 20130708, end: 20130708
  2. KEPPRA [Suspect]
     Dosage: UNKNOWN DOSE
  3. TAVOR [Suspect]
     Dosage: DOSE: 4 DF
     Route: 048
     Dates: start: 20130708, end: 20130708
  4. TAVOR [Suspect]
     Dosage: UNKNOWN DOSE
  5. NORMIX [Concomitant]
     Route: 048

REACTIONS (3)
  - Confusional state [Unknown]
  - Drug abuse [Unknown]
  - Overdose [Unknown]
